FAERS Safety Report 9942995 (Version 2)
Quarter: 2014Q1

REPORT INFORMATION
  Report Type: Spontaneous
  Country: IT (occurrence: IT)
  Receive Date: 20140303
  Receipt Date: 20140307
  Transmission Date: 20141002
  Serious: Yes (Other)
  Sender: FDA-Public Use
  Company Number: PHHY2014IT024647

PATIENT
  Age: 40 Year
  Sex: Male

DRUGS (2)
  1. TEGRETOL [Suspect]
     Dosage: 400 MG, (TOTAL)
     Route: 048
     Dates: start: 20140124, end: 20140124
  2. KEPPRA [Suspect]
     Dosage: 500 MG, (TOTAL)
     Route: 048
     Dates: start: 20140124, end: 20140124

REACTIONS (2)
  - Convulsion [Recovered/Resolved]
  - Incorrect dose administered [Recovered/Resolved]
